FAERS Safety Report 8090060-1 (Version None)
Quarter: 2012Q1

REPORT INFORMATION
  Report Type: 
  Country: None (occurrence: None)
  Receive Date: 20120129
  Receipt Date: 20111028
  Transmission Date: 20120608
  Serious: No
  Sender: FDA-Public Use
  Company Number: US-ABBOTT-11P-163-0869403-00

PATIENT
  Age: 17 Year
  Sex: Female

DRUGS (4)
  1. HUMIRA [Suspect]
     Dates: start: 20110928, end: 20110928
  2. HUMIRA [Suspect]
     Dates: start: 20111031
  3. HUMIRA [Suspect]
     Dates: start: 20111014, end: 20111014
  4. HUMIRA [Suspect]
     Indication: CROHN'S DISEASE
     Dates: start: 20110927, end: 20110927

REACTIONS (1)
  - INJECTION SITE PAIN [None]
